FAERS Safety Report 6322532-1 (Version None)
Quarter: 2009Q3

REPORT INFORMATION
  Report Type: 
  Country: None (occurrence: None)
  Receive Date: 20090824
  Receipt Date: 20090812
  Transmission Date: 20100115
  Serious: Yes (Other)
  Sender: FDA-Public Use
  Company Number: US-PFIZER INC-2009247976

PATIENT
  Age: 9 Year
  Sex: Male

DRUGS (2)
  1. VIBRAMYCIN [Suspect]
     Indication: LYME DISEASE
     Dosage: 100 MG, 2X/DAY
     Dates: start: 20090705, end: 20090721
  2. METHYLPHENIDATE [Concomitant]

REACTIONS (4)
  - BLISTER [None]
  - LIP DISORDER [None]
  - PURULENT DISCHARGE [None]
  - SKIN BURNING SENSATION [None]
